FAERS Safety Report 16901801 (Version 4)
Quarter: 2019Q4

REPORT INFORMATION
  Report Type: Report from Study
  Country: US (occurrence: US)
  Receive Date: 20191010
  Receipt Date: 20191219
  Transmission Date: 20200122
  Serious: Yes (Hospitalization)
  Sender: FDA-Public Use
  Company Number: US-BRISTOL-MYERS SQUIBB COMPANY-BMS-2019-096127

PATIENT
  Age: 76 Year
  Sex: Female
  Weight: 76.8 kg

DRUGS (2)
  1. NIVOLUMAB [Suspect]
     Active Substance: NIVOLUMAB
     Indication: RENAL CELL CARCINOMA
     Dosage: 480 MILLIGRAM, Q4WK
     Route: 042
     Dates: start: 20190605, end: 20190703
  2. NIVOLUMAB [Suspect]
     Active Substance: NIVOLUMAB
     Indication: PRODUCT USED FOR UNKNOWN INDICATION
     Dosage: 480 MILLIGRAM, Q4WK
     Route: 042
     Dates: start: 20191002, end: 20191002

REACTIONS (8)
  - Pneumonitis [Unknown]
  - Dyspnoea [Unknown]
  - Chills [Unknown]
  - Cough [Unknown]
  - Pyrexia [Unknown]
  - Night sweats [Unknown]
  - Chromaturia [Unknown]
  - Fatigue [Unknown]

NARRATIVE: CASE EVENT DATE: 20190925
